FAERS Safety Report 8375959 (Version 2)
Quarter: 2013Q1

REPORT INFORMATION
  Report Type: Report from Study
  Country: US (occurrence: US)
  Receive Date: 20120129
  Receipt Date: 20130201
  Transmission Date: 20140127
  Serious: No
  Sender: FDA-Public Use
  Company Number: US-ABBOTT-11P-163-0887017-00

PATIENT
  Sex: Female

DRUGS (18)
  1. HUMIRA [Suspect]
     Indication: RHEUMATOID ARTHRITIS
     Dates: start: 2006
  2. HUMIRA [Suspect]
  3. SUMATRIPTAN [Concomitant]
     Indication: MIGRAINE
     Route: 045
  4. LIDOCAINE [Concomitant]
     Indication: PRODUCT USED FOR UNKNOWN INDICATION
  5. DEXTROAMPHETAMINE [Concomitant]
     Indication: PRODUCT USED FOR UNKNOWN INDICATION
     Dosage: TOLD TO INCREASE BUT PATIENT HAS NOT
  6. ACTONEL [Concomitant]
     Indication: PRODUCT USED FOR UNKNOWN INDICATION
  7. LACMICTAL [Concomitant]
     Indication: DEPRESSION
     Dosage: AT NIGHT
  8. TRAZADONE [Concomitant]
     Indication: DEPRESSION
     Dosage: EVERY NIGHT
  9. AMBIEN [Concomitant]
     Indication: INSOMNIA
     Dosage: 1 AS NEEDED
  10. LITHIUM [Concomitant]
     Indication: BIPOLAR DISORDER
  11. LOMOTIL [Concomitant]
     Indication: DIARRHOEA
  12. PHENERGAN [Concomitant]
     Indication: PRODUCT USED FOR UNKNOWN INDICATION
  13. FOLIC ACID [Concomitant]
     Indication: PRODUCT USED FOR UNKNOWN INDICATION
     Dosage: 2MG EVERYDAY WHEN CORNERS OF MOUTH SPLIT
  14. FIORICET [Concomitant]
     Indication: PAIN
     Dosage: #3
  15. TRAMADOL [Concomitant]
     Indication: PAIN
  16. SOMA [Concomitant]
     Indication: THERAPY CHANGE
  17. NAPROXEN [Concomitant]
     Indication: PAIN
  18. PHENERGAN [Concomitant]
     Indication: PRODUCT USED FOR UNKNOWN INDICATION

REACTIONS (9)
  - Musculoskeletal stiffness [Unknown]
  - Onychomycosis [Unknown]
  - Bone loss [Unknown]
  - Blood calcium increased [Unknown]
  - Exostosis [Unknown]
  - Sinusitis [Unknown]
  - Musculoskeletal pain [Unknown]
  - Fatigue [Unknown]
  - Onychomycosis [Recovered/Resolved]
